FAERS Safety Report 6204795-6 (Version None)
Quarter: 2009Q2

REPORT INFORMATION
  Report Type: 
  Country: None (occurrence: None)
  Receive Date: 20090527
  Receipt Date: 20090507
  Transmission Date: 20091009
  Serious: Yes (Other)
  Sender: FDA-Public Use
  Company Number: PHHY2009JP20220

PATIENT

DRUGS (1)
  1. RESCULA [Suspect]

REACTIONS (1)
  - MACULAR HOLE [None]
